FAERS Safety Report 5624602-X (Version None)
Quarter: 2008Q1

REPORT INFORMATION
  Report Type: 
  Country: None (occurrence: None)
  Receive Date: 20080208
  Receipt Date: 20080125
  Transmission Date: 20080703
  Serious: Yes (Death, Hospitalization)
  Sender: FDA-Public Use
  Company Number: US022461

PATIENT
  Age: 22 Year
  Sex: Male

DRUGS (2)
  1. FENTANYL [Suspect]
     Dosage: OTHER
     Route: 050
  2. COCAINE [Suspect]
     Dosage: OTHER
     Route: 050

REACTIONS (4)
  - CARDIAC ARREST [None]
  - DRUG ABUSE [None]
  - INCORRECT ROUTE OF DRUG ADMINISTRATION [None]
  - RESPIRATORY ARREST [None]
